FAERS Safety Report 25891088 (Version 1)
Quarter: 2025Q4

REPORT INFORMATION
  Report Type: Spontaneous
  Country: US (occurrence: US)
  Receive Date: 20251007
  Receipt Date: 20251007
  Transmission Date: 20260118
  Serious: No
  Sender: VERONA PHARMA
  Company Number: US-VERONA PHARMA-VER-009096

PATIENT
  Sex: Male

DRUGS (2)
  1. OHTUVAYRE [Suspect]
     Active Substance: ENSIFENTRINE
     Indication: Chronic obstructive pulmonary disease
     Dosage: 3 MILLIGRAM, BID
     Dates: start: 202507
  2. OHTUVAYRE [Suspect]
     Active Substance: ENSIFENTRINE
     Indication: Rhinitis allergic
     Dosage: 3 MILLIGRAM, BID
     Dates: start: 202507

REACTIONS (5)
  - Therapeutic product effect incomplete [Unknown]
  - Product deposit [Unknown]
  - Product preparation issue [Unknown]
  - Incorrect dose administered [Unknown]
  - Product complaint [Unknown]
